FAERS Safety Report 4750196-7 (Version None)
Quarter: 2005Q3

REPORT INFORMATION
  Report Type: 
  Country: None (occurrence: None)
  Receive Date: 20050818
  Receipt Date: 20050811
  Transmission Date: 20060218
  Serious: Yes (Other)
  Sender: FDA-Public Use
  Company Number: USA-2002-0006855

PATIENT
  Age: 28 Year
  Sex: Male

DRUGS (10)
  1. OXYCONTIN [Suspect]
     Indication: PAIN
     Dosage: SEE IMAGE
     Dates: start: 19990801, end: 20020501
  2. OXYCONTIN [Suspect]
     Indication: PAIN
     Dosage: SEE IMAGE
     Dates: start: 19991019
  3. ROXILOX [Concomitant]
  4. LAMISIL [Concomitant]
  5. LOTRISONE [Concomitant]
  6. IBUPROFEN [Concomitant]
  7. LORCET-HD [Concomitant]
  8. DIAZEPAM [Concomitant]
  9. ULTRAM [Concomitant]
  10. TYLOX (OXYCODONE HYDROCHLORIDE) [Concomitant]

REACTIONS (15)
  - BACK PAIN [None]
  - DEPRESSION [None]
  - DRUG DEPENDENCE [None]
  - DRUG EFFECT DECREASED [None]
  - DRUG WITHDRAWAL SYNDROME [None]
  - GROIN INFECTION [None]
  - HEADACHE [None]
  - HYPERCHOLESTEROLAEMIA [None]
  - HYPERHIDROSIS [None]
  - INTERVERTEBRAL DISC PROTRUSION [None]
  - ONYCHOMYCOSIS [None]
  - PAIN [None]
  - PAIN IN EXTREMITY [None]
  - SUICIDAL IDEATION [None]
  - TINEA CRURIS [None]
